FAERS Safety Report 10310174 (Version 1)
Quarter: 2014Q3

REPORT INFORMATION
  Report Type: Spontaneous
  Country: DE (occurrence: DE)
  Receive Date: 20140717
  Receipt Date: 20140717
  Transmission Date: 20150326
  Serious: Yes (Death, Life-Threatening, Other)
  Sender: FDA-Public Use
  Company Number: DE-AMGEN-DEUSP2014051592

PATIENT
  Age: 67 Year
  Sex: Male
  Weight: 69 kg

DRUGS (2)
  1. NPLATE [Suspect]
     Active Substance: ROMIPLOSTIM
     Indication: THROMBOTIC THROMBOCYTOPENIC PURPURA
     Dosage: 250 MUG, QWK
     Route: 058
     Dates: start: 201310, end: 201405
  2. PREDNISON [Concomitant]
     Active Substance: PREDNISONE
     Indication: IMMUNE THROMBOCYTOPENIC PURPURA
     Dosage: 5-20 MG, UNK
     Dates: start: 201310, end: 201406

REACTIONS (15)
  - Granulocytes abnormal [Unknown]
  - Acute myeloid leukaemia [Fatal]
  - Myelodysplastic syndrome [Unknown]
  - Pneumonia [Unknown]
  - Ischaemic cardiomyopathy [Unknown]
  - Atrial fibrillation [Unknown]
  - Thrombocytopenia [Unknown]
  - Bone marrow disorder [Unknown]
  - Splenectomy [Unknown]
  - Coronary artery occlusion [Unknown]
  - Multi-organ failure [Fatal]
  - Serum ferritin decreased [Unknown]
  - Cardiac failure [Unknown]
  - Coronary artery stenosis [Unknown]
  - Coronary artery disease [Unknown]

NARRATIVE: CASE EVENT DATE: 201405
